FAERS Safety Report 8247837-9 (Version None)
Quarter: 2012Q1

REPORT INFORMATION
  Report Type: 
  Country: None (occurrence: None)
  Receive Date: 20120330
  Receipt Date: 20120323
  Transmission Date: 20120608
  Serious: Yes (Disabling, Other)
  Sender: FDA-Public Use
  Company Number: US-GILEAD-2012-0051511

PATIENT
  Sex: Male

DRUGS (12)
  1. AZITHROMYCIN [Concomitant]
     Indication: CYSTIC FIBROSIS LUNG
  2. LANTUS [Concomitant]
  3. CAYSTON [Suspect]
     Indication: PSEUDOMONAS INFECTION
  4. PANTOPRAZOLE [Concomitant]
     Indication: GASTROOESOPHAGEAL REFLUX DISEASE
  5. ZOSYN [Concomitant]
     Indication: CYSTIC FIBROSIS LUNG
  6. NORVASC [Concomitant]
  7. ADVAIR DISKUS 100/50 [Concomitant]
     Indication: BRONCHIAL HYPERREACTIVITY
  8. CREON [Concomitant]
  9. ZOSYN [Concomitant]
     Indication: PSEUDOMONAS INFECTION
  10. PULMICORT [Concomitant]
     Indication: SINUSITIS
  11. SPIRIVA [Concomitant]
     Indication: CYSTIC FIBROSIS LUNG
  12. PULMOZYME [Concomitant]
     Indication: CYSTIC FIBROSIS LUNG

REACTIONS (1)
  - MYCOBACTERIUM ABSCESSUS INFECTION [None]
